FAERS Safety Report 23561612 (Version 1)
Quarter: 2024Q1

REPORT INFORMATION
  Report Type: Spontaneous
  Country: US (occurrence: US)
  Receive Date: 20240225
  Receipt Date: 20240225
  Transmission Date: 20240410
  Serious: Yes (Hospitalization, Other)
  Sender: FDA-Public Use
  Company Number: US-DRL-USA-LIT/USA/24/0003032

PATIENT
  Age: 69 Year
  Sex: Female

DRUGS (1)
  1. CYCLOPHOSPHAMIDE [Suspect]
     Active Substance: CYCLOPHOSPHAMIDE
     Indication: Goodpasture^s syndrome
     Dosage: DAILY

REACTIONS (2)
  - Condition aggravated [Recovering/Resolving]
  - Drug ineffective [Unknown]
